FAERS Safety Report 26080457 (Version 1)
Quarter: 2025Q4

REPORT INFORMATION
  Report Type: Spontaneous
  Country: CN (occurrence: CN)
  Receive Date: 20251124
  Receipt Date: 20251124
  Transmission Date: 20260118
  Serious: Yes (Life-Threatening, Hospitalization)
  Sender: STRIDES
  Company Number: None

PATIENT
  Age: 60 Year
  Sex: Female

DRUGS (3)
  1. MYCOPHENOLATE MOFETIL [Suspect]
     Active Substance: MYCOPHENOLATE MOFETIL
     Indication: Immunosuppressant drug therapy
     Dosage: 250 MILLIGRAMS
     Route: 065
     Dates: start: 201607
  2. TACROLIMUS [Suspect]
     Active Substance: TACROLIMUS
     Indication: Immunosuppressant drug therapy
     Dosage: 0.5 MILLIGRAM, BID
     Route: 065
     Dates: start: 201607
  3. PREDNISOLONE [Suspect]
     Active Substance: PREDNISOLONE
     Indication: Immunosuppressant drug therapy
     Dosage: 5 MILLIGRAM, QD
     Route: 065
     Dates: start: 201607

REACTIONS (10)
  - Respiratory failure [Unknown]
  - Lung adenocarcinoma stage IV [Unknown]
  - Metastases to heart [Unknown]
  - Metastases to the mediastinum [Unknown]
  - Metastases to retroperitoneum [Unknown]
  - Metastases to lymph nodes [Unknown]
  - Metastases to pleura [Unknown]
  - Pericardial effusion [Unknown]
  - Pleural effusion [Unknown]
  - Off label use [Unknown]

NARRATIVE: CASE EVENT DATE: 20220801
